FAERS Safety Report 17911825 (Version 1)
Quarter: 2020Q2

REPORT INFORMATION
  Report Type: Spontaneous
  Country: US (occurrence: US)
  Receive Date: 20200618
  Receipt Date: 20200618
  Transmission Date: 20200714
  Serious: No
  Sender: FDA-Public Use
  Company Number: US-METUCHEN-STN-2019-0228

PATIENT
  Age: 74 Year
  Sex: Male

DRUGS (2)
  1. STENDRA [Suspect]
     Active Substance: AVANAFIL
     Indication: PRODUCT USED FOR UNKNOWN INDICATION
     Dosage: 200MG TABLET CUT IN HALF
     Route: 048
     Dates: start: 20190809
  2. STENDRA [Suspect]
     Active Substance: AVANAFIL
     Dosage: 200MG
     Route: 048
     Dates: start: 201908

REACTIONS (2)
  - Wrong technique in product usage process [Unknown]
  - Drug ineffective [Unknown]

NARRATIVE: CASE EVENT DATE: 20190809
